FAERS Safety Report 5938161-5 (Version None)
Quarter: 2008Q4

REPORT INFORMATION
  Report Type: 
  Country: None (occurrence: None)
  Receive Date: 20081031
  Receipt Date: 20081027
  Transmission Date: 20090506
  Serious: No
  Sender: FDA-Public Use
  Company Number: US-B.I. PHARMACEUTICALS,INC./RIDGEFIELD-2008-BP-16351BP

PATIENT
  Sex: Female

DRUGS (7)
  1. SPIRIVA [Suspect]
     Indication: CHRONIC OBSTRUCTIVE PULMONARY DISEASE
     Dosage: 18MCG
     Route: 055
     Dates: start: 20040101
  2. PULMICORT-100 [Concomitant]
     Indication: CHRONIC OBSTRUCTIVE PULMONARY DISEASE
  3. O2 @ 2 LTR. @ NIGHT [Concomitant]
  4. EFFEXOR XR [Concomitant]
     Indication: DEPRESSION
  5. MIACALCIN [Concomitant]
     Indication: OSTEOPOROSIS
  6. ZEBETA [Concomitant]
  7. PROVENTIL [Concomitant]
     Indication: UNEVALUABLE EVENT

REACTIONS (3)
  - DRY MOUTH [None]
  - DYSPHAGIA [None]
  - DYSPNOEA [None]
